FAERS Safety Report 21567080 (Version 1)
Quarter: 2022Q4

REPORT INFORMATION
  Report Type: Spontaneous
  Country: US (occurrence: US)
  Receive Date: 20221108
  Receipt Date: 20221108
  Transmission Date: 20230113
  Serious: Yes (Other)
  Sender: FDA-Public Use
  Company Number: US-AMGEN-USASP2022188489

PATIENT
  Age: 17 Year
  Sex: Female

DRUGS (2)
  1. RITUXIMAB [Suspect]
     Active Substance: RITUXIMAB
     Indication: Pemphigoid
     Dosage: UNK, Q2WK FOR 2 MONTHS
     Route: 065
  2. RITUXIMAB [Suspect]
     Active Substance: RITUXIMAB
     Indication: Off label use
     Dosage: UNK, Q4WK FOR 3 MONTHS
     Route: 065

REACTIONS (2)
  - Pemphigoid [Recovered/Resolved]
  - Off label use [Unknown]
